FAERS Safety Report 6197975-X (Version None)
Quarter: 2009Q2

REPORT INFORMATION
  Report Type: 
  Country: None (occurrence: None)
  Receive Date: 20090521
  Receipt Date: 20090507
  Transmission Date: 20091009
  Serious: Yes (Other)
  Sender: FDA-Public Use
  Company Number: BR-JNJFOC-20090501969

PATIENT
  Age: 24 Year
  Sex: Female
  Weight: 62 kg

DRUGS (1)
  1. ACETAMINOPHEN W/ CODEINE [Suspect]
     Indication: HEADACHE
     Route: 048

REACTIONS (4)
  - BLISTER [None]
  - DERMATITIS ALLERGIC [None]
  - NAUSEA [None]
  - VOMITING [None]
